FAERS Safety Report 19814655 (Version 1)
Quarter: 2021Q3

REPORT INFORMATION
  Report Type: Spontaneous
  Country: GB (occurrence: GB)
  Receive Date: 20210909
  Receipt Date: 20210909
  Transmission Date: 20211014
  Serious: Yes (Hospitalization, Other)
  Sender: FDA-Public Use
  Company Number: GB-MYLANLABS-2021M1059013

PATIENT
  Age: 50 Year
  Sex: Female
  Weight: 99.79 kg

DRUGS (6)
  1. FLUOXETINE [Concomitant]
     Active Substance: FLUOXETINE HYDROCHLORIDE
     Dosage: 20 MILLIGRAM, BID, 2 DAILY
     Dates: start: 20210826
  2. RAMIPRIL. [Concomitant]
     Active Substance: RAMIPRIL
     Dosage: 2.5 MILLIGRAM, QD, 1 CAPSULE ONCE A DAY
     Dates: start: 20210826
  3. NAPROXEN. [Suspect]
     Active Substance: NAPROXEN
     Indication: PRODUCT USED FOR UNKNOWN INDICATION
     Dosage: 500 MILLIGRAM, BID
     Route: 048
     Dates: start: 20210609, end: 20210818
  4. BUSCOPAN [Concomitant]
     Active Substance: BUTYLSCOPOLAMINE BROMIDE
     Dosage: THREE TIMES A DAY WHEN REQUIRED
     Dates: start: 20210826
  5. BUSCOPAN [Concomitant]
     Active Substance: BUTYLSCOPOLAMINE BROMIDE
     Dosage: THREE TIMES A DAY WHEN REQUIRED
     Dates: start: 20210818, end: 20210901
  6. OMEPRAZOLE. [Concomitant]
     Active Substance: OMEPRAZOLE
     Dosage: 20 MILLIGRAM, QD, 1 CAPSULE ONCE A DAY ON DAYS YOU TAKE IBUPROFEN
     Dates: start: 20210826

REACTIONS (1)
  - Acute kidney injury [Recovering/Resolving]

NARRATIVE: CASE EVENT DATE: 20210818
